FAERS Safety Report 6489634-0 (Version None)
Quarter: 2009Q4

REPORT INFORMATION
  Report Type: 
  Country: None (occurrence: None)
  Receive Date: 20091207
  Receipt Date: 20091123
  Transmission Date: 20100525
  Serious: Yes (Hospitalization, Other)
  Sender: FDA-Public Use
  Company Number: 2009AC000361

PATIENT
  Age: 75 Year
  Sex: Female

DRUGS (23)
  1. DIGOXIN [Suspect]
     Dosage: PO
     Route: 048
  2. CIPRO [Concomitant]
  3. DARVOCET [Concomitant]
  4. ASPIRIN [Concomitant]
  5. LOPRESSOR [Concomitant]
  6. COUMADIN [Concomitant]
  7. NYSTATIN [Concomitant]
  8. PRILOSEC [Concomitant]
  9. LIPITOR [Concomitant]
  10. REGLAN [Concomitant]
  11. SYNTHROID [Concomitant]
  12. ASPIRIN [Concomitant]
  13. CELEXA [Concomitant]
  14. MIRALAX [Concomitant]
  15. CLARITIN [Concomitant]
  16. LOPRESSOR [Concomitant]
  17. MUCINEX [Concomitant]
  18. VALIUM [Concomitant]
  19. LORTAB [Concomitant]
  20. LIPITOR [Concomitant]
  21. NEXIUM [Concomitant]
  22. CORDARONE [Concomitant]
  23. BACTRIM [Concomitant]

REACTIONS (39)
  - ACUTE MYOCARDIAL INFARCTION [None]
  - ANAEMIA [None]
  - ANXIETY [None]
  - ATRIAL FIBRILLATION [None]
  - ATRIOVENTRICULAR BLOCK COMPLETE [None]
  - BLEPHARITIS [None]
  - BRADYCARDIA [None]
  - CARDIAC ARREST [None]
  - CARDIAC FAILURE CONGESTIVE [None]
  - CONJUNCTIVITIS [None]
  - CONSTIPATION [None]
  - CORONARY ARTERY DISEASE [None]
  - DISCOMFORT [None]
  - DYSLIPIDAEMIA [None]
  - ECONOMIC PROBLEM [None]
  - EMOTIONAL DISTRESS [None]
  - FEAR [None]
  - FEMUR FRACTURE [None]
  - FUNGAL OESOPHAGITIS [None]
  - GASTRITIS [None]
  - GASTROINTESTINAL HAEMORRHAGE [None]
  - GASTROOESOPHAGEAL REFLUX DISEASE [None]
  - HYPERTENSION [None]
  - HYPOTHYROIDISM [None]
  - JOINT DISLOCATION [None]
  - KYPHOSIS [None]
  - LARYNGECTOMY [None]
  - MENTAL STATUS CHANGES [None]
  - MULTIPLE INJURIES [None]
  - MUSCULAR WEAKNESS [None]
  - NEPHRECTOMY [None]
  - OSTEOPOROSIS [None]
  - PAIN [None]
  - PAIN IN EXTREMITY [None]
  - THERAPEUTIC AGENT TOXICITY [None]
  - THROAT CANCER [None]
  - UNEVALUABLE EVENT [None]
  - UPPER LIMB FRACTURE [None]
  - URINARY INCONTINENCE [None]
